FAERS Safety Report 11056227 (Version 2)
Quarter: 2015Q2

REPORT INFORMATION
  Report Type: Spontaneous
  Country: PR (occurrence: PR)
  Receive Date: 20150422
  Receipt Date: 20150508
  Transmission Date: 20150821
  Serious: No
  Sender: FDA-Public Use
  Company Number: PR-BAXTER-2015BAX021450

PATIENT
  Weight: 1.2 kg

DRUGS (14)
  1. POTASSIUM CHLORIDE 0.4MEQ/ML [Suspect]
     Active Substance: POTASSIUM CHLORIDE
     Indication: NUTRITIONAL SUPPLEMENTATION
     Route: 042
  2. MG SULPHATE [Suspect]
     Active Substance: MAGNESIUM SULFATE
     Indication: NUTRITIONAL SUPPLEMENTATION
     Route: 042
  3. CALCIUM GLUCONATE. [Suspect]
     Active Substance: CALCIUM GLUCONATE
     Indication: NUTRITIONAL SUPPLEMENTATION
     Route: 042
  4. L-CARNITINE [Suspect]
     Active Substance: CARNITINE
     Indication: NUTRITIONAL SUPPLEMENTATION
     Route: 042
  5. L-CARNITINE [Suspect]
     Active Substance: CARNITINE
     Route: 042
  6. 5% SODIUM CHLORIDE INJECTION [Suspect]
     Active Substance: SODIUM CHLORIDE
     Indication: NUTRITIONAL SUPPLEMENTATION
     Route: 042
  7. STERILE WATER [Suspect]
     Active Substance: WATER
     Indication: NUTRITIONAL SUPPLEMENTATION
     Route: 042
  8. POTASSIUM PHOSPHATE [Suspect]
     Active Substance: POTASSIUM PHOSPHATE
     Indication: NUTRITIONAL SUPPLEMENTATION
     Route: 042
  9. ZINC SULFATE [Suspect]
     Active Substance: ZINC SULFATE\ZINC SULFATE ANHYDROUS
     Indication: NUTRITIONAL SUPPLEMENTATION
     Route: 042
  10. PEDIATRIC INFUVITE MULTIPLE VITAMINS [Suspect]
     Active Substance: ALPHA-TOCOPHEROL ACETATE\ASCORBIC ACID\BIOTIN\CHOLECALCIFEROL\CYANOCOBALAMIN\DEXPANTHENOL\FOLIC ACID\NIACINAMIDE\PHYTONADIONE\PYRIDOXINE HYDROCHLORIDE\RIBOFLAVIN 5^-PHOSPHATE SODIUM\THIAMINE HYDROCHLORIDE\VITAMIN A PALMITATE
     Indication: NUTRITIONAL SUPPLEMENTATION
     Route: 042
  11. TROPHAMINE [Suspect]
     Active Substance: ALANINE\ARGININE\ASPARTIC ACID\CYSTEINE HYDROCHLORIDE\GLUTAMIC ACID\GLYCINE\HISTIDINE\ISOLEUCINE\LEUCINE\LYSINE ACETATE\METHIONINE\N-ACETYL-TYROSINE\PHENYLALANINE\PROLINE\SERINE\TAURINE\THREONINE\TRYPTOPHAN\TYROSINE\VALINE
     Indication: NUTRITIONAL SUPPLEMENTATION
     Route: 042
  12. FOLIC ACID. [Suspect]
     Active Substance: FOLIC ACID
     Indication: NUTRITIONAL SUPPLEMENTATION
     Route: 042
  13. 70% DEXTROSE INJECTION USP [Suspect]
     Active Substance: DEXTROSE
     Indication: NUTRITIONAL SUPPLEMENTATION
     Route: 042
  14. SODIUM ACETATE. [Suspect]
     Active Substance: SODIUM ACETATE
     Indication: NUTRITIONAL SUPPLEMENTATION
     Route: 042

REACTIONS (2)
  - Incorrect drug administration rate [Recovered/Resolved]
  - No adverse event [Recovered/Resolved]
